FAERS Safety Report 17036060 (Version 1)
Quarter: 2019Q4

REPORT INFORMATION
  Report Type: Report from Study
  Country: US (occurrence: US)
  Receive Date: 20191115
  Receipt Date: 20191115
  Transmission Date: 20200122
  Serious: Yes (Other)
  Sender: FDA-Public Use
  Company Number: US-HORIZON-KRY-1023-2019

PATIENT
  Age: 83 Year
  Sex: Male

DRUGS (1)
  1. KRYSTEXXA [Suspect]
     Active Substance: PEGLOTICASE
     Indication: PRODUCT USED FOR UNKNOWN INDICATION
     Route: 042

REACTIONS (6)
  - Pruritus [Unknown]
  - Anal incontinence [Unknown]
  - Blood pressure decreased [Unknown]
  - Respiratory rate increased [Unknown]
  - Cough [Unknown]
  - Incoherent [Unknown]

NARRATIVE: CASE EVENT DATE: 20191017
